FAERS Safety Report 6058031-4 (Version None)
Quarter: 2009Q1

REPORT INFORMATION
  Report Type: 
  Country: None (occurrence: None)
  Receive Date: 20090127
  Receipt Date: 20090114
  Transmission Date: 20090719
  Serious: Yes (Other)
  Sender: FDA-Public Use
  Company Number: 232503J08USA

PATIENT
  Age: 47 Year
  Sex: Female
  Weight: 91 kg

DRUGS (5)
  1. REBIF [Suspect]
     Indication: MULTIPLE SCLEROSIS
     Dosage: 44 MCG, 3 IN 1 WEEKS, SUBCUTANEOUS, 22 MCG, 3 IN 1 WEEKS, SUBCUTANEOUS
     Route: 058
     Dates: start: 20070313, end: 20080801
  2. SYNTHROID [Suspect]
  3. NEURONTIN [Suspect]
     Indication: PARAESTHESIA
  4. NAPROSYN [Suspect]
  5. CYMBALTA [Suspect]
     Indication: HYPOAESTHESIA

REACTIONS (6)
  - BREAST CANCER STAGE I [None]
  - BREAST MASS [None]
  - HAEMATOCRIT DECREASED [None]
  - PYREXIA [None]
  - URINARY TRACT INFECTION [None]
  - WHITE BLOOD CELL COUNT DECREASED [None]
